FAERS Safety Report 9868509 (Version 3)
Quarter: 2014Q4

REPORT INFORMATION
  Report Type: Spontaneous
  Country: US (occurrence: US)
  Receive Date: 20140204
  Receipt Date: 20141021
  Transmission Date: 20150529
  Serious: Yes (Hospitalization, Other)
  Sender: FDA-Public Use
  Company Number: US-009507513-1402USA000678

PATIENT
  Sex: Female
  Weight: 99.32 kg

DRUGS (2)
  1. NUVARING [Suspect]
     Active Substance: ETHINYL ESTRADIOL\ETONOGESTREL
     Indication: CONTRACEPTION
     Dosage: UNK
     Route: 067
     Dates: start: 2007
  2. INVEGA [Suspect]
     Active Substance: PALIPERIDONE
     Indication: PSYCHOTIC DISORDER
     Dosage: UNK
     Dates: start: 20070403

REACTIONS (7)
  - Thrombophlebitis superficial [Unknown]
  - Pulmonary embolism [Unknown]
  - Antiphospholipid antibodies positive [Unknown]
  - Cardiac murmur [Unknown]
  - Thyroid function test abnormal [Unknown]
  - Deep vein thrombosis [Unknown]
  - Thrombocytopenia [Unknown]

NARRATIVE: CASE EVENT DATE: 200704
